FAERS Safety Report 9175498 (Version 1)
Quarter: 2013Q1

REPORT INFORMATION
  Report Type: Report from Study
  Country: IN (occurrence: IN)
  Receive Date: 20130320
  Receipt Date: 20130320
  Transmission Date: 20140127
  Serious: Yes (Hospitalization)
  Sender: FDA-Public Use
  Company Number: IN-ROCHE-1202631

PATIENT
  Age: 66 Year
  Sex: Female
  Weight: 40.04 kg

DRUGS (1)
  1. OMALIZUMAB [Suspect]
     Indication: ASTHMA
     Route: 058
     Dates: start: 20130117

REACTIONS (2)
  - H1N1 influenza [Unknown]
  - Pneumonia [Recovering/Resolving]
